FAERS Safety Report 25835362 (Version 1)
Quarter: 2025Q3

REPORT INFORMATION
  Report Type: Spontaneous
  Country: CA (occurrence: CA)
  Receive Date: 20250923
  Receipt Date: 20250923
  Transmission Date: 20251020
  Serious: Yes (Congenital Anomaly, Other)
  Sender: Haleon PLC
  Company Number: CA-002147023-NVSC2024CA247899

PATIENT
  Sex: Female

DRUGS (209)
  1. DICLOFENAC SODIUM [Suspect]
     Active Substance: DICLOFENAC SODIUM
     Indication: Product used for unknown indication
  2. DICLOFENAC SODIUM [Suspect]
     Active Substance: DICLOFENAC SODIUM
  3. DICLOFENAC SODIUM [Suspect]
     Active Substance: DICLOFENAC SODIUM
  4. DICLOFENAC SODIUM [Suspect]
     Active Substance: DICLOFENAC SODIUM
  5. CELECOXIB [Suspect]
     Active Substance: CELECOXIB
     Indication: Product used for unknown indication
  6. MEGLUMINE [Suspect]
     Active Substance: MEGLUMINE
     Indication: Product used for unknown indication
  7. GOLD SODIUM THIOMALATE [Suspect]
     Active Substance: GOLD SODIUM THIOMALATE
     Indication: Product used for unknown indication
  8. ATOMOXETINE HYDROCHLORIDE [Suspect]
     Active Substance: ATOMOXETINE HYDROCHLORIDE
     Indication: Product used for unknown indication
  9. DICLOFENAC POTASSIUM [Suspect]
     Active Substance: DICLOFENAC POTASSIUM
     Indication: Product used for unknown indication
  10. ERENUMAB [Suspect]
     Active Substance: ERENUMAB
     Indication: Product used for unknown indication
  11. DICLOFENAC SODIUM [Suspect]
     Active Substance: DICLOFENAC SODIUM
     Indication: Product used for unknown indication
  12. DICLOFENAC SODIUM [Suspect]
     Active Substance: DICLOFENAC SODIUM
     Indication: Product used for unknown indication
  13. DICLOFENAC SODIUM [Suspect]
     Active Substance: DICLOFENAC SODIUM
  14. DICLOFENAC SODIUM [Suspect]
     Active Substance: DICLOFENAC SODIUM
  15. DICLOFENAC SODIUM [Suspect]
     Active Substance: DICLOFENAC SODIUM
  16. ERENUMAB-AOOE [Suspect]
     Active Substance: ERENUMAB-AOOE
     Indication: Product used for unknown indication
  17. LEFLUNOMIDE [Suspect]
     Active Substance: LEFLUNOMIDE
     Indication: Product used for unknown indication
  18. ATOMOXETINE [Suspect]
     Active Substance: ATOMOXETINE
     Indication: Product used for unknown indication
  19. ATOMOXETINE [Suspect]
     Active Substance: ATOMOXETINE
  20. VITAMIN C [Suspect]
     Active Substance: ASCORBIC ACID
     Indication: Product used for unknown indication
  21. VITAMIN C [Suspect]
     Active Substance: ASCORBIC ACID
  22. ATOMOXETINE HYDROCHLORIDE [Suspect]
     Active Substance: ATOMOXETINE HYDROCHLORIDE
     Indication: Product used for unknown indication
  23. DICLOFENAC POTASSIUM [Suspect]
     Active Substance: DICLOFENAC POTASSIUM
     Indication: Product used for unknown indication
  24. DICLOFENAC POTASSIUM [Suspect]
     Active Substance: DICLOFENAC POTASSIUM
  25. DICLOFENAC POTASSIUM [Suspect]
     Active Substance: DICLOFENAC POTASSIUM
  26. DICLOFENAC POTASSIUM [Suspect]
     Active Substance: DICLOFENAC POTASSIUM
  27. DICLOFENAC POTASSIUM [Suspect]
     Active Substance: DICLOFENAC POTASSIUM
  28. DICLOFENAC POTASSIUM [Suspect]
     Active Substance: DICLOFENAC POTASSIUM
  29. DICLOFENAC POTASSIUM [Suspect]
     Active Substance: DICLOFENAC POTASSIUM
  30. ADALIMUMAB [Suspect]
     Active Substance: ADALIMUMAB
     Indication: Product used for unknown indication
  31. ADALIMUMAB [Suspect]
     Active Substance: ADALIMUMAB
  32. ADALIMUMAB [Suspect]
     Active Substance: ADALIMUMAB
  33. HYRIMOZ [Suspect]
     Active Substance: ADALIMUMAB-ADAZ
     Indication: Product used for unknown indication
  34. ALENDRONIC ACID [Suspect]
     Active Substance: ALENDRONIC ACID
     Indication: Foetal exposure during pregnancy
  35. DICLOFENAC EPOLAMINE [Suspect]
     Active Substance: DICLOFENAC EPOLAMINE
     Indication: Product used for unknown indication
  36. RITUXIMAB [Suspect]
     Active Substance: RITUXIMAB
     Indication: Product used for unknown indication
  37. RITUXIMAB [Suspect]
     Active Substance: RITUXIMAB
  38. RITUXIMAB [Suspect]
     Active Substance: RITUXIMAB
     Dosage: 2000 MG, QD
  39. RITUXIMAB [Suspect]
     Active Substance: RITUXIMAB
  40. RITUXIMAB [Suspect]
     Active Substance: RITUXIMAB
  41. RITUXIMAB [Suspect]
     Active Substance: RITUXIMAB
  42. RITUXIMAB [Suspect]
     Active Substance: RITUXIMAB
  43. RITUXIMAB [Suspect]
     Active Substance: RITUXIMAB
  44. RITUXIMAB [Suspect]
     Active Substance: RITUXIMAB
  45. RITUXIMAB [Suspect]
     Active Substance: RITUXIMAB
  46. RITUXIMAB [Suspect]
     Active Substance: RITUXIMAB
  47. RITUXIMAB [Suspect]
     Active Substance: RITUXIMAB
  48. RITUXIMAB [Suspect]
     Active Substance: RITUXIMAB
  49. RITUXIMAB [Suspect]
     Active Substance: RITUXIMAB
  50. RITUXIMAB [Suspect]
     Active Substance: RITUXIMAB
  51. RITUXIMAB [Suspect]
     Active Substance: RITUXIMAB
  52. RITUXIMAB [Suspect]
     Active Substance: RITUXIMAB
  53. RITUXIMAB [Suspect]
     Active Substance: RITUXIMAB
     Dosage: UNK UNK, QD
  54. RITUXIMAB [Suspect]
     Active Substance: RITUXIMAB
  55. RITUXIMAB [Suspect]
     Active Substance: RITUXIMAB
  56. RITUXIMAB [Suspect]
     Active Substance: RITUXIMAB
  57. CANDESARTAN [Suspect]
     Active Substance: CANDESARTAN
     Indication: Product used for unknown indication
  58. CANDESARTAN [Suspect]
     Active Substance: CANDESARTAN
  59. LEFLUNOMIDE [Suspect]
     Active Substance: LEFLUNOMIDE
     Indication: Product used for unknown indication
  60. LEFLUNOMIDE [Suspect]
     Active Substance: LEFLUNOMIDE
     Indication: Foetal exposure during pregnancy
  61. PREDNISONE [Suspect]
     Active Substance: PREDNISONE
     Indication: Product used for unknown indication
  62. ARAVA [Suspect]
     Active Substance: LEFLUNOMIDE
     Indication: Product used for unknown indication
  63. BERINERT [Suspect]
     Active Substance: HUMAN C1-ESTERASE INHIBITOR
     Indication: Product used for unknown indication
  64. BERINERT [Suspect]
     Active Substance: HUMAN C1-ESTERASE INHIBITOR
  65. DOMPERIDONE MALEATE [Suspect]
     Active Substance: DOMPERIDONE MALEATE
     Indication: Product used for unknown indication
  66. ENBREL [Suspect]
     Active Substance: ETANERCEPT
     Indication: Product used for unknown indication
  67. ENBREL [Suspect]
     Active Substance: ETANERCEPT
     Dosage: 50 MG, QW
  68. ENBREL [Suspect]
     Active Substance: ETANERCEPT
  69. FLUMETHASONE [Suspect]
     Active Substance: FLUMETHASONE
     Indication: Product used for unknown indication
  70. HAIR KERATIN AMINO ACIDS GOLD COMPLEX [Suspect]
     Active Substance: HAIR KERATIN AMINO ACIDS GOLD COMPLEX
     Indication: Product used for unknown indication
  71. GOLD SODIUM THIOMALATE [Suspect]
     Active Substance: GOLD SODIUM THIOMALATE
     Indication: Product used for unknown indication
  72. HUMIRA [Suspect]
     Active Substance: ADALIMUMAB
     Indication: Product used for unknown indication
  73. HUMIRA [Suspect]
     Active Substance: ADALIMUMAB
  74. HYDROCORTISONE PROBUTATE [Suspect]
     Active Substance: HYDROCORTISONE PROBUTATE
     Indication: Product used for unknown indication
  75. HYDROXYCHLOROQUINE [Suspect]
     Active Substance: HYDROXYCHLOROQUINE
     Indication: Product used for unknown indication
  76. HYDROXYCHLOROQUINE [Suspect]
     Active Substance: HYDROXYCHLOROQUINE
  77. HYDROXYCHLOROQUINE SULFATE [Suspect]
     Active Substance: HYDROXYCHLOROQUINE SULFATE
     Indication: Product used for unknown indication
  78. HYDROXYCHLOROQUINE SULFATE [Suspect]
     Active Substance: HYDROXYCHLOROQUINE SULFATE
  79. INFLIXIMAB [Suspect]
     Active Substance: INFLIXIMAB
     Indication: Product used for unknown indication
  80. INFLIXIMAB [Suspect]
     Active Substance: INFLIXIMAB
  81. ISOPROPYL ALCOHOL [Suspect]
     Active Substance: ISOPROPYL ALCOHOL
     Indication: Product used for unknown indication
  82. ISOPROPYL ALCOHOL [Suspect]
     Active Substance: ISOPROPYL ALCOHOL
     Indication: Product used for unknown indication
  83. LAMICTAL [Suspect]
     Active Substance: LAMOTRIGINE
     Indication: Product used for unknown indication
  84. LAMICTAL [Suspect]
     Active Substance: LAMOTRIGINE
  85. ORENCIA [Suspect]
     Active Substance: ABATACEPT
     Indication: Product used for unknown indication
  86. ORENCIA [Suspect]
     Active Substance: ABATACEPT
  87. OXYCODONE TEREPHTHALATE [Suspect]
     Active Substance: OXYCODONE TEREPHTHALATE
     Indication: Product used for unknown indication
  88. OXYCODONE TEREPHTHALATE [Suspect]
     Active Substance: OXYCODONE TEREPHTHALATE
  89. PERIOGARD [Suspect]
     Active Substance: CHLORHEXIDINE GLUCONATE
     Indication: Product used for unknown indication
  90. PERIOGARD [Suspect]
     Active Substance: CHLORHEXIDINE GLUCONATE
  91. PHTHALYLSULFATHIAZOLE [Suspect]
     Active Substance: PHTHALYLSULFATHIAZOLE
     Indication: Product used for unknown indication
  92. PHTHALYLSULFATHIAZOLE [Suspect]
     Active Substance: PHTHALYLSULFATHIAZOLE
  93. PREDNISONE [Suspect]
     Active Substance: PREDNISONE
     Indication: Product used for unknown indication
  94. PSEUDOEPHEDRINE [Suspect]
     Active Substance: PSEUDOEPHEDRINE
     Indication: Product used for unknown indication
  95. PSEUDOEPHEDRINE [Suspect]
     Active Substance: PSEUDOEPHEDRINE
  96. RAMIPRIL [Suspect]
     Active Substance: RAMIPRIL
     Indication: Product used for unknown indication
  97. RAMIPRIL [Suspect]
     Active Substance: RAMIPRIL
     Indication: Product used for unknown indication
  98. CETIRIZINE HYDROCHLORIDE\PSEUDOEPHEDRINE HYDROCHLORIDE [Suspect]
     Active Substance: CETIRIZINE HYDROCHLORIDE\PSEUDOEPHEDRINE HYDROCHLORIDE
     Indication: Product used for unknown indication
  99. CETIRIZINE HYDROCHLORIDE\PSEUDOEPHEDRINE HYDROCHLORIDE [Suspect]
     Active Substance: CETIRIZINE HYDROCHLORIDE\PSEUDOEPHEDRINE HYDROCHLORIDE
     Indication: Product used for unknown indication
  100. LEFLUNOMIDE [Suspect]
     Active Substance: LEFLUNOMIDE
     Indication: Product used for unknown indication
  101. LEFLUNOMIDE [Suspect]
     Active Substance: LEFLUNOMIDE
  102. LEFLUNOMIDE [Suspect]
     Active Substance: LEFLUNOMIDE
  103. LEFLUNOMIDE [Suspect]
     Active Substance: LEFLUNOMIDE
  104. LEFLUNOMIDE [Suspect]
     Active Substance: LEFLUNOMIDE
  105. LEFLUNOMIDE [Suspect]
     Active Substance: LEFLUNOMIDE
  106. LEFLUNOMIDE [Suspect]
     Active Substance: LEFLUNOMIDE
     Dosage: 10MG,QD
  107. LEFLUNOMIDE [Suspect]
     Active Substance: LEFLUNOMIDE
  108. LEFLUNOMIDE [Suspect]
     Active Substance: LEFLUNOMIDE
  109. METFORMIN [Suspect]
     Active Substance: METFORMIN HYDROCHLORIDE
     Indication: Product used for unknown indication
  110. OXYCODONE [Suspect]
     Active Substance: OXYCODONE
     Indication: Product used for unknown indication
  111. OXYCODONE [Suspect]
     Active Substance: OXYCODONE
     Indication: Foetal exposure during pregnancy
  112. OXYCODONE [Suspect]
     Active Substance: OXYCODONE
  113. OXYCODONE [Suspect]
     Active Substance: OXYCODONE
  114. OXYCODONE [Suspect]
     Active Substance: OXYCODONE
  115. COSENTYX [Suspect]
     Active Substance: SECUKINUMAB
     Indication: Product used for unknown indication
  116. COSENTYX [Suspect]
     Active Substance: SECUKINUMAB
  117. AIMOVIG [Suspect]
     Active Substance: ERENUMAB-AOOE
     Indication: Product used for unknown indication
  118. MAGNESIUM CITRATE [Suspect]
     Active Substance: MAGNESIUM CITRATE
     Indication: Product used for unknown indication
  119. ATOMOXETINE [Suspect]
     Active Substance: ATOMOXETINE
     Indication: Product used for unknown indication
  120. ATOMOXETINE [Suspect]
     Active Substance: ATOMOXETINE
  121. CHOLECALCIFEROL [Suspect]
     Active Substance: CHOLECALCIFEROL
     Indication: Foetal exposure during pregnancy
  122. CHOLECALCIFEROL [Suspect]
     Active Substance: CHOLECALCIFEROL
     Indication: Product used for unknown indication
  123. ERGOCALCIFEROL [Suspect]
     Active Substance: ERGOCALCIFEROL
     Indication: Product used for unknown indication
  124. HYDROCORTISONE [Suspect]
     Active Substance: HYDROCORTISONE
     Indication: Product used for unknown indication
  125. HYDROCORTISONE [Suspect]
     Active Substance: HYDROCORTISONE
  126. PHENYLEPHRINE HYDROCHLORIDE [Suspect]
     Active Substance: PHENYLEPHRINE HYDROCHLORIDE
     Indication: Product used for unknown indication
  127. METHOTREXATE [Suspect]
     Active Substance: METHOTREXATE
     Indication: Product used for unknown indication
  128. METHOTREXATE [Suspect]
     Active Substance: METHOTREXATE
  129. IMURAN [Suspect]
     Active Substance: AZATHIOPRINE
     Indication: Product used for unknown indication
  130. TRUXIMA [Suspect]
     Active Substance: RITUXIMAB-ABBS
     Indication: Product used for unknown indication
  131. TRUXIMA [Suspect]
     Active Substance: RITUXIMAB-ABBS
  132. TRUXIMA [Suspect]
     Active Substance: RITUXIMAB-ABBS
  133. TRUXIMA [Suspect]
     Active Substance: RITUXIMAB-ABBS
  134. TRUXIMA [Suspect]
     Active Substance: RITUXIMAB-ABBS
  135. TRUXIMA [Suspect]
     Active Substance: RITUXIMAB-ABBS
  136. TRUXIMA [Suspect]
     Active Substance: RITUXIMAB-ABBS
  137. TRUXIMA [Suspect]
     Active Substance: RITUXIMAB-ABBS
  138. TRUXIMA [Suspect]
     Active Substance: RITUXIMAB-ABBS
  139. TRUXIMA [Suspect]
     Active Substance: RITUXIMAB-ABBS
  140. TRUXIMA [Suspect]
     Active Substance: RITUXIMAB-ABBS
  141. TRUXIMA [Suspect]
     Active Substance: RITUXIMAB-ABBS
  142. TRUXIMA [Suspect]
     Active Substance: RITUXIMAB-ABBS
  143. TRUXIMA [Suspect]
     Active Substance: RITUXIMAB-ABBS
  144. METFORMIN HYDROCHLORIDE [Suspect]
     Active Substance: METFORMIN HYDROCHLORIDE
     Indication: Product used for unknown indication
  145. METFORMIN HYDROCHLORIDE [Suspect]
     Active Substance: METFORMIN HYDROCHLORIDE
     Indication: Product used for unknown indication
  146. ACETAMINOPHEN [Suspect]
     Active Substance: ACETAMINOPHEN
     Indication: Product used for unknown indication
  147. ACETAMINOPHEN [Suspect]
     Active Substance: ACETAMINOPHEN
     Indication: Foetal exposure during pregnancy
  148. ACETAMINOPHEN AND CODEINE [Suspect]
     Active Substance: ACETAMINOPHEN\CODEINE PHOSPHATE
     Indication: Foetal exposure during pregnancy
  149. ACTEMRA [Suspect]
     Active Substance: TOCILIZUMAB
     Indication: Product used for unknown indication
  150. BOTULINUM TOXIN TYPE A [Suspect]
     Active Substance: BOTULINUM TOXIN TYPE A
     Indication: Product used for unknown indication
  151. BOTULINUM TOXIN TYPE A [Suspect]
     Active Substance: BOTULINUM TOXIN TYPE A
  152. BUTRANS [Suspect]
     Active Substance: BUPRENORPHINE
     Indication: Product used for unknown indication
  153. CALCIUM ASCORBATE [Suspect]
     Active Substance: CALCIUM ASCORBATE
     Indication: Product used for unknown indication
  154. CALCIUM ASCORBATE [Suspect]
     Active Substance: CALCIUM ASCORBATE
  155. CALCIUM CITRATE [Suspect]
     Active Substance: CALCIUM CITRATE
     Indication: Product used for unknown indication
  156. CALCIUM GLUBIONATE [Suspect]
     Active Substance: CALCIUM GLUBIONATE
     Indication: Product used for unknown indication
  157. CELEBREX [Suspect]
     Active Substance: CELECOXIB
     Indication: Product used for unknown indication
  158. CELEBREX [Suspect]
     Active Substance: CELECOXIB
  159. CELEBREX [Suspect]
     Active Substance: CELECOXIB
     Dosage: 2 DOSAGE FORM
  160. CELEBREX [Suspect]
     Active Substance: CELECOXIB
  161. CETIRIZINE [Suspect]
     Active Substance: CETIRIZINE HYDROCHLORIDE
     Indication: Product used for unknown indication
  162. CHLORHEXIDINE GLUCONATE [Suspect]
     Active Substance: CHLORHEXIDINE GLUCONATE
     Indication: Product used for unknown indication
  163. CIMZIA [Suspect]
     Active Substance: CERTOLIZUMAB PEGOL
     Indication: Product used for unknown indication
  164. CIMZIA [Suspect]
     Active Substance: CERTOLIZUMAB PEGOL
  165. CORTISONE ACETATE [Suspect]
     Active Substance: CORTISONE ACETATE
     Indication: Product used for unknown indication
  166. DESOXIMETASONE [Suspect]
     Active Substance: DESOXIMETASONE
     Indication: Product used for unknown indication
  167. DESOXIMETASONE [Suspect]
     Active Substance: DESOXIMETASONE
  168. DESOXIMETASONE [Suspect]
     Active Substance: DESOXIMETASONE
  169. FLUMETHASONE PIVALATE [Suspect]
     Active Substance: FLUMETHASONE PIVALATE
     Indication: Product used for unknown indication
  170. FLUMETHASONE PIVALATE [Suspect]
     Active Substance: FLUMETHASONE PIVALATE
  171. FOLIC ACID [Suspect]
     Active Substance: FOLIC ACID
     Indication: Product used for unknown indication
  172. FOSAMAX [Suspect]
     Active Substance: ALENDRONATE SODIUM
     Indication: Product used for unknown indication
  173. METHYLPREDNISOLONE [Suspect]
     Active Substance: METHYLPREDNISOLONE
     Indication: Product used for unknown indication
  174. MINOCYCLINE [Suspect]
     Active Substance: MINOCYCLINE HYDROCHLORIDE
     Indication: Product used for unknown indication
  175. MINOCYCLINE [Suspect]
     Active Substance: MINOCYCLINE HYDROCHLORIDE
  176. MINOCYCLINE HYDROCHLORIDE [Suspect]
     Active Substance: MINOCYCLINE HYDROCHLORIDE
     Indication: Product used for unknown indication
  177. MINOCYCLINE HYDROCHLORIDE [Suspect]
     Active Substance: MINOCYCLINE HYDROCHLORIDE
  178. MYOCHRYSINE [Suspect]
     Active Substance: GOLD SODIUM THIOMALATE
     Indication: Product used for unknown indication
     Route: 030
  179. MYOCHRYSINE [Suspect]
     Active Substance: GOLD SODIUM THIOMALATE
     Route: 030
  180. MYRBETRIQ [Suspect]
     Active Substance: MIRABEGRON
     Indication: Product used for unknown indication
  181. MYRBETRIQ [Suspect]
     Active Substance: MIRABEGRON
  182. NAPROXEN [Suspect]
     Active Substance: NAPROXEN
     Indication: Product used for unknown indication
  183. NAPROXEN [Suspect]
     Active Substance: NAPROXEN
  184. NAPROXEN SODIUM [Suspect]
     Active Substance: NAPROXEN SODIUM
     Indication: Product used for unknown indication
  185. NAPROXEN SODIUM [Suspect]
     Active Substance: NAPROXEN SODIUM
  186. NICOTINAMIDE [Suspect]
     Active Substance: NIACINAMIDE
     Indication: Product used for unknown indication
  187. NICOTINAMIDE [Suspect]
     Active Substance: NIACINAMIDE
  188. NUCALA [Suspect]
     Active Substance: MEPOLIZUMAB
     Indication: Product used for unknown indication
  189. NUCALA [Suspect]
     Active Substance: MEPOLIZUMAB
  190. SIMPONI [Suspect]
     Active Substance: GOLIMUMAB
     Indication: Product used for unknown indication
  191. SIMPONI [Suspect]
     Active Substance: GOLIMUMAB
     Indication: Product used for unknown indication
  192. SULFASALAZINE [Suspect]
     Active Substance: SULFASALAZINE
     Indication: Product used for unknown indication
  193. SULFASALAZINE [Suspect]
     Active Substance: SULFASALAZINE
     Indication: Product used for unknown indication
  194. TOPIRAMATE [Suspect]
     Active Substance: TOPIRAMATE
     Indication: Product used for unknown indication
  195. TOPIRAMATE [Suspect]
     Active Substance: TOPIRAMATE
  196. XELJANZ [Suspect]
     Active Substance: TOFACITINIB CITRATE
     Indication: Product used for unknown indication
  197. XELJANZ [Suspect]
     Active Substance: TOFACITINIB CITRATE
  198. ZINC [Suspect]
     Active Substance: ZINC
     Indication: Product used for unknown indication
  199. ZINC [Suspect]
     Active Substance: ZINC
     Indication: Product used for unknown indication
  200. CHOLECALCIFEROL [Suspect]
     Active Substance: CHOLECALCIFEROL
     Indication: Product used for unknown indication
  201. CHOLECALCIFEROL [Suspect]
     Active Substance: CHOLECALCIFEROL
  202. ALENDRONATE SODIUM [Suspect]
     Active Substance: ALENDRONATE SODIUM
     Indication: Product used for unknown indication
  203. ALENDRONATE SODIUM [Suspect]
     Active Substance: ALENDRONATE SODIUM
     Indication: Product used for unknown indication
  204. ACETAMINOPHEN [Suspect]
     Active Substance: ACETAMINOPHEN
     Indication: Product used for unknown indication
  205. AZATHIOPRINE [Suspect]
     Active Substance: AZATHIOPRINE
     Indication: Product used for unknown indication
  206. AZATHIOPRINE [Suspect]
     Active Substance: AZATHIOPRINE
  207. TOPIRAMATE [Suspect]
     Active Substance: TOPIRAMATE
     Indication: Product used for unknown indication
  208. ACETAMINOPHEN\CODEINE PHOSPHATE [Suspect]
     Active Substance: ACETAMINOPHEN\CODEINE PHOSPHATE
     Indication: Product used for unknown indication
  209. DICLOFENAC SODIUM [Suspect]
     Active Substance: DICLOFENAC SODIUM
     Indication: Product used for unknown indication

REACTIONS (2)
  - Congenital anomaly [Unknown]
  - Maternal exposure during pregnancy [Unknown]
